FAERS Safety Report 4548376-9 (Version None)
Quarter: 2005Q1

REPORT INFORMATION
  Report Type: 
  Country: None (occurrence: None)
  Receive Date: 20050110
  Receipt Date: 20041223
  Transmission Date: 20050727
  Serious: Yes (Hospitalization)
  Sender: FDA-Public Use
  Company Number: BE-ROCHE-390247

PATIENT
  Age: 66 Year
  Sex: Female

DRUGS (4)
  1. XELODA [Suspect]
     Route: 048
  2. TAXOTERE [Suspect]
     Route: 065
  3. LIPANTHYL [Concomitant]
     Dates: end: 20041215
  4. AUGMENTIN '125' [Concomitant]
     Dates: end: 20041115

REACTIONS (1)
  - RHABDOMYOLYSIS [None]
